FAERS Safety Report 5005979-5 (Version None)
Quarter: 2006Q2

REPORT INFORMATION
  Report Type: 
  Country: None (occurrence: None)
  Receive Date: 20060517
  Receipt Date: 20060517
  Transmission Date: 20061013
  Serious: Yes (Life-Threatening, Hospitalization, Disabling, Other)
  Sender: FDA-Public Use
  Company Number: None

PATIENT
  Age: 53 Year
  Sex: Male
  Weight: 77.1115 kg

DRUGS (10)
  1. ALLOPURINOL [Suspect]
     Indication: GOUT
     Dosage: 300MG DAILY PO
     Route: 048
     Dates: start: 20060331, end: 20060406
  2. AMITRIPTYLINE HCL [Concomitant]
  3. BIAXIN [Concomitant]
  4. COLCHICINE [Concomitant]
  5. NORVASC [Concomitant]
  6. ATENOLOL [Concomitant]
  7. ADVAIR PROCARDIA [Concomitant]
  8. DILANTIN [Concomitant]
  9. NEURONTIN [Concomitant]
  10. COCAINE [Concomitant]

REACTIONS (5)
  - ANAEMIA [None]
  - DRUG HYPERSENSITIVITY [None]
  - RASH [None]
  - RENAL FAILURE ACUTE [None]
  - STEVENS-JOHNSON SYNDROME [None]
